FAERS Safety Report 5826527-3 (Version None)
Quarter: 2008Q3

REPORT INFORMATION
  Report Type: 
  Country: None (occurrence: None)
  Receive Date: 20080725
  Receipt Date: 20080715
  Transmission Date: 20090109
  Serious: No
  Sender: FDA-Public Use
  Company Number: ABMDB-08-0121

PATIENT
  Age: 59 Year
  Sex: Female

DRUGS (7)
  1. ABRAXANE [Suspect]
     Indication: BREAST CANCER
     Dosage: 100-135 MG
     Dates: end: 20071227
  2. LISINOPRIL [Concomitant]
  3. LEVOTHYROXINE SODIUM [Concomitant]
  4. DANAZOL [Concomitant]
  5. ANASTROZOLE [Concomitant]
  6. HYDROCHLOROTHIAZIDE [Concomitant]
  7. ZOCOR [Concomitant]

REACTIONS (2)
  - NEUROPATHY PERIPHERAL [None]
  - SYNCOPE [None]
